FAERS Safety Report 7628387-7 (Version None)
Quarter: 2011Q3

REPORT INFORMATION
  Report Type: 
  Country: None (occurrence: None)
  Receive Date: 20110722
  Receipt Date: 20110719
  Transmission Date: 20111222
  Serious: No
  Sender: FDA-Public Use
  Company Number: US-PFIZER INC-2011164136

PATIENT
  Sex: Female
  Weight: 50.794 kg

DRUGS (9)
  1. VITAMIN D [Concomitant]
     Dosage: UNK
  2. CALCIUM [Concomitant]
     Dosage: UNK
  3. METOPROLOL [Concomitant]
     Indication: SURGERY
     Dosage: UNK
  4. PREDNISONE [Concomitant]
     Indication: FUNGAL INFECTION
     Dosage: UNK
  5. COLCHICINE [Concomitant]
     Indication: ARTHRITIS
     Dosage: UNK
  6. VORICONAZOLE [Suspect]
     Indication: FUNGAL INFECTION
     Dosage: UNK
     Route: 048
     Dates: start: 20110601
  7. SILICA [Concomitant]
     Dosage: UNK
  8. ACETYLSALICYLIC ACID [Concomitant]
     Dosage: UNK
  9. FISH OIL [Concomitant]
     Dosage: UNK

REACTIONS (1)
  - DRUG LEVEL DECREASED [None]
